FAERS Safety Report 13270436 (Version 4)
Quarter: 2017Q4

REPORT INFORMATION
  Report Type: Report from Study
  Country: JP (occurrence: JP)
  Receive Date: 20170224
  Receipt Date: 20171115
  Transmission Date: 20180320
  Serious: Yes (Hospitalization)
  Sender: FDA-Public Use
  Company Number: JP-VIFOR (INTERNATIONAL) INC.-VIT-2017-01938

PATIENT
  Age: 59 Year
  Sex: Female
  Weight: 62 kg

DRUGS (14)
  1. VELPHORO [Suspect]
     Active Substance: FERRIC OXYHYDROXIDE
     Indication: HYPERPHOSPHATAEMIA
     Route: 048
     Dates: start: 20161031, end: 20161110
  2. PITAVASTATIN CALCIUM [Concomitant]
     Active Substance: PITAVASTATIN CALCIUM
     Route: 048
  3. FEBURIC [Concomitant]
     Active Substance: FEBUXOSTAT
     Route: 048
  4. LANSOPRAZOLE. [Concomitant]
     Active Substance: LANSOPRAZOLE
     Route: 048
  5. NESP [Concomitant]
     Active Substance: DARBEPOETIN ALFA
     Dates: end: 20170219
  6. CRAVIT [Concomitant]
     Active Substance: LEVOFLOXACIN
     Indication: PYREXIA
     Dates: start: 20170114, end: 20170114
  7. REGPARA [Concomitant]
     Active Substance: CINACALCET HYDROCHLORIDE
     Route: 048
  8. OLMETEC [Concomitant]
     Active Substance: OLMESARTAN MEDOXOMIL
     Route: 048
  9. ROCALTROL [Concomitant]
     Active Substance: CALCITRIOL
     Route: 048
  10. TRANSAMIN [Concomitant]
     Active Substance: TRANEXAMIC ACID
     Indication: RENAL CYST HAEMORRHAGE
     Route: 041
     Dates: start: 20170114, end: 20170117
  11. NESP [Concomitant]
     Active Substance: DARBEPOETIN ALFA
     Dates: start: 20170220
  12. CRAVIT [Concomitant]
     Active Substance: LEVOFLOXACIN
     Dates: start: 20170116, end: 20170117
  13. VELPHORO [Suspect]
     Active Substance: FERRIC OXYHYDROXIDE
     Route: 048
     Dates: start: 20161114
  14. ADONA [Concomitant]
     Active Substance: CARBAZOCHROME SODIUM SULFONATE
     Indication: RENAL CYST HAEMORRHAGE
     Route: 041
     Dates: start: 20170114, end: 20170117

REACTIONS (12)
  - Renal cyst haemorrhage [Recovered/Resolved]
  - Neutrophil count increased [Unknown]
  - Pyrexia [Recovered/Resolved]
  - Blood urea increased [Unknown]
  - Gastric cyst [Unknown]
  - Haematuria [Unknown]
  - Serum ferritin increased [Recovering/Resolving]
  - Blood creatinine increased [Unknown]
  - C-reactive protein increased [Recovering/Resolving]
  - Haemorrhage [Unknown]
  - Diarrhoea [Recovered/Resolved]
  - Inflammation [Unknown]

NARRATIVE: CASE EVENT DATE: 20161103
